FAERS Safety Report 11921526 (Version 4)
Quarter: 2016Q1

REPORT INFORMATION
  Report Type: Report from Study
  Country: RU (occurrence: RU)
  Receive Date: 20160115
  Receipt Date: 20160212
  Transmission Date: 20160526
  Serious: Yes (Life-Threatening, Hospitalization, Other)
  Sender: FDA-Public Use
  Company Number: RU-AMGEN-RUSNI2016003749

PATIENT
  Age: 7 Year
  Sex: Female

DRUGS (20)
  1. PROMEDOL                           /01498801/ [Suspect]
     Active Substance: TRIMEPERIDINE
     Indication: BACK PAIN
     Dosage: 2 ML, WITH 24 HRS
     Route: 042
     Dates: start: 20151226
  2. ALLOPURINOL. [Concomitant]
     Active Substance: ALLOPURINOL
     Dosage: 100 MG, BID
     Route: 048
     Dates: start: 20151212, end: 20151230
  3. MEDOVIR                            /00587301/ [Concomitant]
     Active Substance: ACYCLOVIR
     Dosage: 250 MG, TID
     Route: 042
     Dates: start: 20151222, end: 20151230
  4. ALGELDRATE W/MAGNESIUM HYDROXIDE [Concomitant]
     Dosage: 5 ML, QD
     Route: 048
     Dates: start: 20151223, end: 20151227
  5. ANALGIN                            /06276704/ [Concomitant]
     Dosage: 0.7 ML (50 %), ONE TIME DOSE
     Route: 042
     Dates: start: 20151225
  6. AMPICILLIN AND SULBACTAM [Concomitant]
     Active Substance: AMPICILLIN SODIUM\SULBACTAM SODIUM
     Dosage: 1 G, TID
     Route: 042
     Dates: start: 20151212, end: 20151230
  7. ACYCLOVIR                          /00587301/ [Concomitant]
     Active Substance: ACYCLOVIR
     Indication: ORAL HERPES
     Route: 042
  8. ALMAGEL                            /00082501/ [Concomitant]
     Dosage: 5 ML, BID
     Route: 048
     Dates: start: 20151223, end: 20151227
  9. PARACETAMOL [Concomitant]
     Active Substance: ACETAMINOPHEN
     Dosage: 0.25 G, QD
     Route: 048
     Dates: start: 20151225
  10. BLINATUMOMAB [Suspect]
     Active Substance: BLINATUMOMAB
     Indication: ACUTE LYMPHOCYTIC LEUKAEMIA
     Dosage: 4.35 MG/KG, 24 HOURS (8.7MKG IN 250ML NACL)
     Route: 042
     Dates: start: 20151228
  11. CHLOROPYRAMINE [Concomitant]
     Active Substance: CHLOROPYRAMINE
     Dosage: 0.5 ML, ONE TIME DOSE
     Route: 040
     Dates: start: 20151225
  12. BISEPTOL [Concomitant]
     Active Substance: SULFAMETHOXAZOLE\TRIMETHOPRIM
     Dosage: 240 MG, BID (MONDAY, WEDNESDAY, FRIDAY)
     Route: 048
     Dates: start: 20151212, end: 20151230
  13. AMBROXOL [Concomitant]
     Active Substance: AMBROXOL
     Dosage: 5 ML, TID
     Route: 048
     Dates: start: 20151221, end: 20151228
  14. SODIUM CHLORIDE. [Concomitant]
     Active Substance: SODIUM CHLORIDE
     Dosage: 0.9 % 12000 ML, QD
     Route: 042
     Dates: start: 20151212
  15. DEXA                               /00008501/ [Concomitant]
     Indication: PREMEDICATION
     Dosage: 16 MG, WITHIN 1 HOUR
     Route: 042
     Dates: start: 20151228
  16. DEXAMETHASONE. [Concomitant]
     Active Substance: DEXAMETHASONE
     Dosage: 5 TO 10 MG, QD
     Route: 042
     Dates: start: 20151222, end: 20151228
  17. GLUCOSE                            /00203503/ [Concomitant]
     Dosage: 5 %, QD, 1200 ML
     Route: 042
     Dates: start: 20151221
  18. THIORIDAZINE [Suspect]
     Active Substance: THIORIDAZINE
     Indication: PRODUCT USED FOR UNKNOWN INDICATION
     Dosage: 10 MG, BID
     Route: 048
     Dates: start: 20151226
  19. OMEPRAZOLE. [Concomitant]
     Active Substance: OMEPRAZOLE
     Dosage: 20 MG, QD
     Route: 048
     Dates: start: 20151223
  20. ROMFALAK [Concomitant]
     Dosage: 10 ML, QD
     Route: 048
     Dates: start: 20151229

REACTIONS (2)
  - Pyrexia [Recovered/Resolved]
  - Intestinal obstruction [Recovered/Resolved]

NARRATIVE: CASE EVENT DATE: 20151228
